FAERS Safety Report 6186330-4 (Version None)
Quarter: 2009Q2

REPORT INFORMATION
  Report Type: 
  Country: None (occurrence: None)
  Receive Date: 20090511
  Receipt Date: 20090501
  Transmission Date: 20091009
  Serious: Yes (Other)
  Sender: FDA-Public Use
  Company Number: US-AVENTIS-200913823US

PATIENT
  Sex: Female
  Weight: 136 kg

DRUGS (7)
  1. LANTUS [Suspect]
     Indication: TYPE 2 DIABETES MELLITUS
     Dosage: DOSE: UNK
     Route: 058
     Dates: start: 20080101
  2. LISINOPRIL [Concomitant]
     Dosage: DOSE: UNK
  3. FUROSEMIDE [Concomitant]
     Dosage: DOSE: UNK
  4. ORAL ANTIDIABETICS [Concomitant]
     Dosage: DOSE: UNK
  5. GLIPIZIDE [Concomitant]
     Dosage: DOSE: UNK
  6. ACTOS [Concomitant]
     Dosage: DOSE: UNK
  7. MULTI-VITAMINS [Concomitant]
     Dosage: DOSE: UNK

REACTIONS (5)
  - ACCIDENTAL NEEDLE STICK [None]
  - CLUSTER HEADACHE [None]
  - EYE DISORDER [None]
  - MENINGITIS [None]
  - MIGRAINE [None]
